FAERS Safety Report 23801632 (Version 1)
Quarter: 2024Q2

REPORT INFORMATION
  Report Type: Spontaneous
  Country: IL (occurrence: IL)
  Receive Date: 20240430
  Receipt Date: 20240430
  Transmission Date: 20240715
  Serious: Yes (Hospitalization)
  Sender: FDA-Public Use
  Company Number: IL-BoehringerIngelheim-2024-BI-024878

PATIENT
  Age: 81 Year
  Sex: Male

DRUGS (1)
  1. JARDIANCE [Suspect]
     Active Substance: EMPAGLIFLOZIN
     Indication: Diabetes mellitus

REACTIONS (3)
  - Diarrhoea [Unknown]
  - Vomiting [Unknown]
  - Euglycaemic diabetic ketoacidosis [Unknown]
